FAERS Safety Report 9980100 (Version 1)
Quarter: 2014Q1

REPORT INFORMATION
  Report Type: Report from Study
  Country: US (occurrence: US)
  Receive Date: 20140307
  Receipt Date: 20140307
  Transmission Date: 20141002
  Serious: No
  Sender: FDA-Public Use
  Company Number: US-ABBVIE-13P-163-1175925-00

PATIENT
  Age: 62 Year
  Sex: Female

DRUGS (11)
  1. HUMIRA [Suspect]
     Indication: COLITIS ULCERATIVE
     Dosage: DAY 1
     Dates: start: 20131015, end: 20131015
  2. HUMIRA [Suspect]
     Dosage: 15 DAYS LATER
     Dates: start: 20131030, end: 20131030
  3. HUMIRA [Suspect]
  4. CEPHALEXIN [Suspect]
     Indication: PRODUCT USED FOR UNKNOWN INDICATION
  5. CITALOPRAM [Concomitant]
     Indication: PRODUCT USED FOR UNKNOWN INDICATION
  6. LOVASTATIN [Concomitant]
     Indication: BLOOD CHOLESTEROL
  7. COUMADIN [Concomitant]
     Indication: THROMBOSIS
     Dosage: 6.5 MG ALTERNATING WITH 7 MG DAILY
  8. UNKNOWN MEDICINE [Concomitant]
     Indication: INSOMNIA
  9. UNKNOWN MEDICINE [Concomitant]
     Indication: COLITIS ULCERATIVE
  10. IRON [Concomitant]
     Indication: PRODUCT USED FOR UNKNOWN INDICATION
  11. VITAMIN D [Concomitant]
     Indication: PRODUCT USED FOR UNKNOWN INDICATION

REACTIONS (10)
  - Gastric disorder [Unknown]
  - Vitamin D abnormal [Unknown]
  - Aphonia [Unknown]
  - Inappropriate schedule of drug administration [Unknown]
  - Inflammation [Unknown]
  - Abdominal pain [Unknown]
  - Blood urine present [Unknown]
  - Anaemia [Unknown]
  - Nasopharyngitis [Recovering/Resolving]
  - Cough [Unknown]
